FAERS Safety Report 10568211 (Version 1)
Quarter: 2014Q4

REPORT INFORMATION
  Report Type: Spontaneous
  Country: US (occurrence: None)
  Receive Date: 20141105
  Receipt Date: 20141105
  Transmission Date: 20150529
  Serious: No
  Sender: FDA-Public Use
  Company Number: None

PATIENT
  Age: 48 Year
  Sex: Female
  Weight: 63.5 kg

DRUGS (1)
  1. LEVAQUIN [Suspect]
     Active Substance: LEVOFLOXACIN
     Indication: RESPIRATORY TRACT INFECTION
     Dosage: 1 PILL, ONCE DAILY, TAKEN BY MOUTH
     Route: 048

REACTIONS (8)
  - Dizziness [None]
  - Chest discomfort [None]
  - Laziness [None]
  - Oedema peripheral [None]
  - Musculoskeletal stiffness [None]
  - Feeling abnormal [None]
  - Anxiety [None]
  - Rash generalised [None]

NARRATIVE: CASE EVENT DATE: 20140601
